FAERS Safety Report 6823557-X (Version None)
Quarter: 2010Q3

REPORT INFORMATION
  Report Type: 
  Country: None (occurrence: None)
  Receive Date: 20100708
  Receipt Date: 20100624
  Transmission Date: 20110219
  Serious: No
  Sender: FDA-Public Use
  Company Number: US-B.I. PHARMACEUTICALS,INC./RIDGEFIELD-2010-BP-07230BP

PATIENT
  Sex: Female

DRUGS (5)
  1. ZANTAC 150 [Suspect]
     Indication: DYSPEPSIA
     Dosage: 150 MG
     Route: 048
     Dates: start: 20100623, end: 20100623
  2. ACTIGALL [Concomitant]
     Indication: LIVER DISORDER
     Route: 054
  3. IMURAN [Concomitant]
     Indication: LIVER DISORDER
     Route: 054
  4. INDERAL [Concomitant]
     Indication: LIVER DISORDER
     Route: 054
  5. VITAMINS [Concomitant]
     Indication: PROPHYLAXIS
     Route: 054

REACTIONS (1)
  - CHROMATURIA [None]
